FAERS Safety Report 20899459 (Version 2)
Quarter: 2022Q2

REPORT INFORMATION
  Report Type: Report from Study
  Country: US (occurrence: US)
  Receive Date: 20220601
  Receipt Date: 20220613
  Transmission Date: 20220720
  Serious: Yes (Hospitalization, Other)
  Sender: FDA-Public Use
  Company Number: US-JNJFOC-20220551098

PATIENT
  Age: 49 Year
  Sex: Female
  Weight: 65.9 kg

DRUGS (3)
  1. EPOPROSTENOL SODIUM [Suspect]
     Active Substance: EPOPROSTENOL SODIUM
     Indication: Pulmonary arterial hypertension
     Dosage: VELETRI 1.5 MG VIAL INTRAVENOUS CONTINUOUS
  2. REVATIO [Concomitant]
     Active Substance: SILDENAFIL CITRATE
  3. ADCIRCA [Concomitant]
     Active Substance: TADALAFIL

REACTIONS (4)
  - Thrombosis in device [Unknown]
  - Device occlusion [Unknown]
  - Dizziness [Unknown]
  - Underdose [Unknown]

NARRATIVE: CASE EVENT DATE: 20220201
